FAERS Safety Report 14902021 (Version 1)
Quarter: 2018Q2

REPORT INFORMATION
  Report Type: Spontaneous
  Country: US (occurrence: US)
  Receive Date: 20180516
  Receipt Date: 20180516
  Transmission Date: 20180711
  Serious: No
  Sender: FDA-Public Use
  Company Number: US-BAYER-2018-088094

PATIENT
  Age: 39 Year
  Sex: Female

DRUGS (2)
  1. CLARITIN [Suspect]
     Active Substance: LORATADINE
     Dosage: UNK
     Route: 065
  2. PRENATAL [Suspect]
     Active Substance: VITAMINS

REACTIONS (2)
  - Drug administered to patient of inappropriate age [None]
  - Wrong dose [Unknown]

NARRATIVE: CASE EVENT DATE: 20180507
